FAERS Safety Report 5624946-1 (Version None)
Quarter: 2008Q1

REPORT INFORMATION
  Report Type: 
  Country: None (occurrence: None)
  Receive Date: 20080213
  Receipt Date: 20080211
  Transmission Date: 20080703
  Serious: Yes (Death, Other)
  Sender: FDA-Public Use
  Company Number: CA-SANOFI-SYNTHELABO-F01200800225

PATIENT

DRUGS (3)
  1. CAPECITABINE [Suspect]
     Dosage: 850 MG/M2, TWICE DAILY ON DAYS 2-15
     Route: 048
  2. IRINOTECAN [Suspect]
     Dosage: DAY 1
     Route: 041
  3. OXALIPLATIN [Suspect]
     Indication: COLORECTAL CANCER METASTATIC
     Dosage: DAY 1
     Route: 041

REACTIONS (5)
  - CARDIAC DISORDER [None]
  - NEUTROPENIA [None]
  - PNEUMONIA ASPIRATION [None]
  - RESPIRATORY DISORDER [None]
  - SEPSIS [None]
